FAERS Safety Report 6280577-4 (Version None)
Quarter: 2009Q3

REPORT INFORMATION
  Report Type: 
  Country: None (occurrence: None)
  Receive Date: 20090724
  Receipt Date: 20090129
  Transmission Date: 20100115
  Serious: No
  Sender: FDA-Public Use
  Company Number: A0745837A

PATIENT
  Age: 30 Year
  Sex: Male
  Weight: 65.9 kg

DRUGS (3)
  1. AVANDIA [Suspect]
     Dosage: 8MG PER DAY
     Route: 048
     Dates: start: 20060901, end: 20070401
  2. METFORMIN HCL [Concomitant]
  3. HUMALOG [Concomitant]

REACTIONS (2)
  - ARRHYTHMIA [None]
  - CHEST PAIN [None]
